FAERS Safety Report 6544251-9 (Version None)
Quarter: 2010Q1

REPORT INFORMATION
  Report Type: 
  Country: None (occurrence: None)
  Receive Date: 20100119
  Receipt Date: 20100119
  Transmission Date: 20100710
  Serious: Yes (Disabling, Other)
  Sender: FDA-Public Use
  Company Number: None

PATIENT
  Age: 85 Year
  Sex: Male

DRUGS (10)
  1. SIMVASTATIN [Suspect]
     Indication: ATRIAL FIBRILLATION
     Dosage: ORAL
     Route: 048
     Dates: start: 20081101
  2. VERAPAMIL [Suspect]
     Indication: ATRIAL FIBRILLATION
     Dosage: 120 MG, 3 IN 1 D, ORAL
     Route: 048
  3. ASPIRIN [Concomitant]
  4. BECLOMETASONE [Concomitant]
  5. BRIMONIDINE TARTRATE [Concomitant]
  6. FUROSEMIDE [Concomitant]
  7. LISINOPRIL [Concomitant]
  8. ACETAMINOPHEN AND CODEINE PHOSPHATE [Concomitant]
  9. SALBUTAMOL (INHALANT) [Concomitant]
  10. SALMETEROL (INHALANT) [Concomitant]

REACTIONS (3)
  - BLOOD CREATINE PHOSPHOKINASE INCREASED [None]
  - HYPOKINESIA [None]
  - MYOSITIS [None]
